FAERS Safety Report 7473041-8 (Version None)
Quarter: 2011Q2

REPORT INFORMATION
  Report Type: 
  Country: None (occurrence: None)
  Receive Date: 20110511
  Receipt Date: 20110405
  Transmission Date: 20111010
  Serious: No
  Sender: FDA-Public Use
  Company Number: IT-ROCHE-769754

PATIENT
  Sex: Female

DRUGS (9)
  1. ALOXI [Concomitant]
     Route: 042
  2. ZANTAC [Concomitant]
     Route: 042
  3. LYRICA [Concomitant]
  4. TRIMETON [Concomitant]
     Dosage: FREQUENCY, ROUTE AND DOSE UNKNOWN.
  5. AVASTIN [Suspect]
     Route: 042
  6. PACLITAXEL [Suspect]
     Indication: BREAST CANCER
     Dosage: FREQUENCY CYCLE
     Route: 042
     Dates: start: 20110122, end: 20110301
  7. ACETAMINOPHEN [Concomitant]
     Dosage: FREQUENCY, ROUTE AND DOSE UNKNOWN.
     Dates: end: 20110204
  8. DEXAMETHASONE SODIUM PHOSPHATE [Concomitant]
     Dosage: FREQUENCY, DOSAGE AND ROUTE UNKNOWN.
     Route: 042
  9. AVASTIN [Suspect]
     Indication: BREAST CANCER
     Dosage: FREQUENCY CYCLIC
     Route: 042
     Dates: start: 20110122, end: 20110222

REACTIONS (6)
  - DIARRHOEA [None]
  - CYSTITIS [None]
  - RASH PUSTULAR [None]
  - PYREXIA [None]
  - NEUTROPENIA [None]
  - HYPERTRANSAMINASAEMIA [None]
